FAERS Safety Report 8329713-6 (Version None)
Quarter: 2012Q2

REPORT INFORMATION
  Report Type: 
  Country: None (occurrence: None)
  Receive Date: 20120502
  Receipt Date: 20120425
  Transmission Date: 20120825
  Serious: Yes (Hospitalization)
  Sender: FDA-Public Use
  Company Number: GB-GLAXOSMITHKLINE-B0798227A

PATIENT
  Age: 31 Year
  Sex: Female

DRUGS (1)
  1. FLUTICASONE PROPIONATE/SALMETEROL [Suspect]
     Indication: ASTHMA
     Dosage: 4IUAX PER DAY
     Route: 055
     Dates: start: 20120321

REACTIONS (4)
  - SLEEP DISORDER [None]
  - DEPRESSION [None]
  - HEART RATE INCREASED [None]
  - HYPOAESTHESIA [None]
